FAERS Safety Report 23181938 (Version 1)
Quarter: 2023Q4

REPORT INFORMATION
  Report Type: Spontaneous
  Country: DE (occurrence: DE)
  Receive Date: 20231114
  Receipt Date: 20231114
  Transmission Date: 20240110
  Serious: Yes (Other)
  Sender: FDA-Public Use
  Company Number: DE-002147023-NVSC2023DE226257

PATIENT
  Sex: Female

DRUGS (4)
  1. LAMOTRIGINE [Suspect]
     Active Substance: LAMOTRIGINE
     Indication: Epilepsy
     Dosage: UNK
     Route: 065
     Dates: start: 202308
  2. AIMOVIG [Suspect]
     Active Substance: ERENUMAB-AOOE
     Indication: Vomiting
     Dosage: 400 MG, MONTHLY (400 MG, QMO)
     Route: 065
     Dates: start: 2023
  3. AIMOVIG [Suspect]
     Active Substance: ERENUMAB-AOOE
     Indication: Noninfective encephalitis
  4. AIMOVIG [Suspect]
     Active Substance: ERENUMAB-AOOE
     Indication: Headache

REACTIONS (4)
  - Epilepsy [Unknown]
  - Headache [Unknown]
  - Constipation [Unknown]
  - Product use in unapproved indication [Unknown]

NARRATIVE: CASE EVENT DATE: 20230101
